FAERS Safety Report 21639486 (Version 1)
Quarter: 2022Q4

REPORT INFORMATION
  Report Type: Spontaneous
  Country: IL (occurrence: IL)
  Receive Date: 20221124
  Receipt Date: 20221124
  Transmission Date: 20230113
  Serious: Yes (Hospitalization, Other)
  Sender: FDA-Public Use
  Company Number: IL-BoehringerIngelheim-2022-BI-203506

PATIENT
  Age: 76 Year
  Sex: Male

DRUGS (1)
  1. JARDIANCE [Suspect]
     Active Substance: EMPAGLIFLOZIN
     Indication: Product used for unknown indication

REACTIONS (10)
  - Asthenia [Unknown]
  - Haemoglobin abnormal [Recovering/Resolving]
  - Faeces discoloured [Unknown]
  - Duodenitis [Unknown]
  - Duodenal ulcer [Unknown]
  - Hypertension [Unknown]
  - Pulmonary oedema [Unknown]
  - Renal cyst [Unknown]
  - Renal tubular necrosis [Unknown]
  - Pleural effusion [Unknown]
